FAERS Safety Report 15067851 (Version 2)
Quarter: 2018Q3

REPORT INFORMATION
  Report Type: Spontaneous
  Country: US (occurrence: US)
  Receive Date: 20180626
  Receipt Date: 20180731
  Transmission Date: 20181010
  Serious: Yes (Hospitalization, Other)
  Sender: FDA-Public Use
  Company Number: US-ASTRAZENECA-2018SE80946

PATIENT
  Age: 22387 Day
  Sex: Male
  Weight: 68 kg

DRUGS (1)
  1. TUDORZA PRESSAIR [Suspect]
     Active Substance: ACLIDINIUM BROMIDE
     Indication: CHRONIC OBSTRUCTIVE PULMONARY DISEASE
     Route: 055
     Dates: start: 2016

REACTIONS (12)
  - Fall [Unknown]
  - Wrong technique in product usage process [Unknown]
  - Cerebrovascular accident [Unknown]
  - Road traffic accident [Unknown]
  - Wrist fracture [Unknown]
  - Device malfunction [Unknown]
  - Hip fracture [Unknown]
  - Intentional product misuse [Unknown]
  - Staphylococcal infection [Unknown]
  - Rib fracture [Unknown]
  - Pneumonia [Unknown]
  - Clavicle fracture [Unknown]

NARRATIVE: CASE EVENT DATE: 20170923
